FAERS Safety Report 5945836-0 (Version None)
Quarter: 2008Q4

REPORT INFORMATION
  Report Type: 
  Country: None (occurrence: None)
  Receive Date: 20081106
  Receipt Date: 20081027
  Transmission Date: 20090506
  Serious: Yes (Hospitalization)
  Sender: FDA-Public Use
  Company Number: 2008BI021234

PATIENT
  Age: 58 Year
  Sex: Female

DRUGS (18)
  1. TYSABRI [Suspect]
     Indication: MULTIPLE SCLEROSIS
     Dosage: 300 MG; QM; IV
     Route: 030
     Dates: start: 20080429
  2. MS CONTIN [Concomitant]
  3. OXYBUTYNIN [Concomitant]
  4. PROZAC [Concomitant]
  5. LIPITOR [Concomitant]
  6. TOPROL-XL [Concomitant]
  7. ORAMORPH SR [Concomitant]
  8. SKELAXIN [Concomitant]
  9. MAXZIDE [Concomitant]
  10. PRILOSEC [Concomitant]
  11. NEURONTIN [Concomitant]
  12. PLAVIX [Concomitant]
  13. FOSAMAX [Concomitant]
  14. ASPIRIN [Concomitant]
  15. NITROGLYCERIN [Concomitant]
  16. TYLENOL (CAPLET) [Concomitant]
  17. BACLOFEN [Concomitant]
  18. . [Concomitant]

REACTIONS (7)
  - ASPIRATION [None]
  - CONFUSIONAL STATE [None]
  - DELIRIUM [None]
  - LUNG INFILTRATION [None]
  - PNEUMONIA BACTERIAL [None]
  - SOMNOLENCE [None]
  - WHITE BLOOD CELL COUNT INCREASED [None]
